FAERS Safety Report 7519624-8 (Version None)
Quarter: 2011Q2

REPORT INFORMATION
  Report Type: 
  Country: None (occurrence: None)
  Receive Date: 20110602
  Receipt Date: 20110524
  Transmission Date: 20111010
  Serious: Yes (Hospitalization, Disabling)
  Sender: FDA-Public Use
  Company Number: A0928964A

PATIENT
  Age: 45 Year
  Sex: Male

DRUGS (4)
  1. ALLOPURINOL [Concomitant]
  2. LAMICTAL [Suspect]
     Indication: EPILEPSY
     Dosage: 500MG TWICE PER DAY
     Route: 048
     Dates: start: 20110201, end: 20110201
  3. CARBAMAZEPINE [Concomitant]
  4. DIOVAN [Concomitant]

REACTIONS (4)
  - DYSARTHRIA [None]
  - ATAXIA [None]
  - CONFUSIONAL STATE [None]
  - ASTHENIA [None]
